FAERS Safety Report 5653426-2 (Version None)
Quarter: 2008Q1

REPORT INFORMATION
  Report Type: 
  Country: None (occurrence: None)
  Receive Date: 20080306
  Receipt Date: 20080226
  Transmission Date: 20080703
  Serious: Yes (Other)
  Sender: FDA-Public Use
  Company Number: B0503225A

PATIENT
  Age: 78 Year
  Sex: Male
  Weight: 107 kg

DRUGS (9)
  1. AVANDIA [Suspect]
     Indication: DIABETES MELLITUS
     Dosage: 4MG PER DAY
     Route: 048
     Dates: start: 20060120, end: 20070730
  2. DIGOXIN [Concomitant]
     Dosage: 250MCG PER DAY
     Route: 065
  3. WARFARIN SODIUM [Concomitant]
     Route: 065
  4. OXYTETRACYCLINE [Concomitant]
     Dosage: 500MG TWICE PER DAY
     Route: 065
  5. LACTULOSE [Concomitant]
     Dosage: 10ML TWICE PER DAY
  6. DERMOL (UK) [Concomitant]
  7. RAMIPRIL [Concomitant]
     Dosage: 10MG PER DAY
     Route: 065
  8. GLUCOPHAGE [Concomitant]
     Dosage: 500MG FOUR TIMES PER DAY
     Route: 065
  9. AMLODIPINE [Concomitant]
     Dosage: 10MG PER DAY
     Route: 065

REACTIONS (3)
  - CARDIAC FAILURE CHRONIC [None]
  - CARDIOMEGALY [None]
  - PULMONARY CONGESTION [None]
